FAERS Safety Report 17654234 (Version 2)
Quarter: 2020Q2

REPORT INFORMATION
  Report Type: Spontaneous
  Country: US (occurrence: US)
  Receive Date: 20200410
  Receipt Date: 20200512
  Transmission Date: 20200713
  Serious: Yes (Hospitalization, Other)
  Sender: FDA-Public Use
  Company Number: US-VISTAPHARM, INC.-VER202004-000741

PATIENT
  Age: 9 Year
  Sex: Male
  Weight: 32.5 kg

DRUGS (5)
  1. NALOXONE [Concomitant]
     Active Substance: NALOXONE
     Indication: VOMITING
     Dosage: UNKNOWN
  2. CLONIDINE. [Concomitant]
     Active Substance: CLONIDINE
     Indication: PRODUCT USED FOR UNKNOWN INDICATION
     Dosage: PATCH
  3. CEFTRIAXONE. [Concomitant]
     Active Substance: CEFTRIAXONE
     Indication: PRODUCT USED FOR UNKNOWN INDICATION
     Dosage: UNKNOWN
     Route: 042
  4. LORAZEPAM. [Concomitant]
     Active Substance: LORAZEPAM
     Indication: SEIZURE
     Dosage: 2 MG
     Route: 042
  5. METHADONE [Suspect]
     Active Substance: METHADONE HYDROCHLORIDE
     Indication: PRODUCT USED FOR UNKNOWN INDICATION
     Dosage: UNKNOWN

REACTIONS (3)
  - Encephalitis [Recovered/Resolved]
  - Toxicity to various agents [Recovered/Resolved]
  - Posterior reversible encephalopathy syndrome [Recovered/Resolved]
